FAERS Safety Report 12318677 (Version 3)
Quarter: 2016Q2

REPORT INFORMATION
  Report Type: Spontaneous
  Country: JP (occurrence: JP)
  Receive Date: 20160429
  Receipt Date: 20160602
  Transmission Date: 20160815
  Serious: Yes (Other)
  Sender: FDA-Public Use
  Company Number: JP-UCBSA-2016015114

PATIENT
  Age: 89 Year
  Sex: Female

DRUGS (8)
  1. DEPAKENE [Suspect]
     Active Substance: VALPROIC ACID
     Dosage: 400 MG DAILY
     Route: 048
     Dates: start: 20160426, end: 20160429
  2. E KEPPRA [Suspect]
     Active Substance: LEVETIRACETAM
     Indication: EPILEPSY
     Dosage: 500 MG, 2X/DAY (BID)
     Route: 048
     Dates: start: 201511, end: 20160420
  3. E KEPPRA [Suspect]
     Active Substance: LEVETIRACETAM
     Dosage: 500 MG, DAILY
     Route: 048
     Dates: start: 20160426, end: 20160429
  4. DEPAKENE [Suspect]
     Active Substance: VALPROIC ACID
     Indication: PETIT MAL EPILEPSY
     Dosage: 200 MG, ONCE DAILY (QD)
     Route: 048
     Dates: start: 20160422, end: 20160425
  5. E KEPPRA [Suspect]
     Active Substance: LEVETIRACETAM
     Dosage: 750MG, DAILY
     Route: 048
     Dates: start: 20160421, end: 20160425
  6. E KEPPRA [Suspect]
     Active Substance: LEVETIRACETAM
     Dosage: 250MG, DAILY
     Route: 048
     Dates: start: 20160430, end: 20160506
  7. DEPAKENE [Suspect]
     Active Substance: VALPROIC ACID
     Dosage: 500 MG, DAILY
     Route: 048
     Dates: start: 20160430
  8. TEGRETOL [Suspect]
     Active Substance: CARBAMAZEPINE
     Indication: SEIZURE
     Dosage: 200MG, DAILY
     Route: 048
     Dates: start: 20160419, end: 20160425

REACTIONS (1)
  - Petit mal epilepsy [Recovered/Resolved]

NARRATIVE: CASE EVENT DATE: 20160417
